FAERS Safety Report 24081099 (Version 7)
Quarter: 2024Q3

REPORT INFORMATION
  Report Type: Spontaneous
  Country: IT (occurrence: IT)
  Receive Date: 20240711
  Receipt Date: 20240906
  Transmission Date: 20241016
  Serious: Yes (Life-Threatening, Other)
  Sender: PFIZER
  Company Number: IT-MLMSERVICE-20240702-PI115472-00101-3

PATIENT
  Age: 13 Year
  Sex: Male

DRUGS (21)
  1. BRENTUXIMAB VEDOTIN [Suspect]
     Active Substance: BRENTUXIMAB VEDOTIN
     Indication: Hodgkin^s disease recurrent
     Dosage: 2 CYCLES OF BV (1.8 MG/KG, I. V., DAY 1)
     Route: 042
  2. BRENTUXIMAB VEDOTIN [Suspect]
     Active Substance: BRENTUXIMAB VEDOTIN
     Indication: Hodgkin^s disease refractory
     Dosage: 4 CYCLES, BV-DHAP
  3. BRENTUXIMAB VEDOTIN [Suspect]
     Active Substance: BRENTUXIMAB VEDOTIN
     Indication: Hodgkin^s disease
  4. CISPLATIN [Suspect]
     Active Substance: CISPLATIN
     Indication: Hodgkin^s disease recurrent
     Dosage: 4 CYCLES (2X/DAY)
  5. CISPLATIN [Suspect]
     Active Substance: CISPLATIN
     Indication: Hodgkin^s disease nodular sclerosis stage IV
  6. CISPLATIN [Suspect]
     Active Substance: CISPLATIN
     Indication: Hodgkin^s disease
  7. CYTARABINE [Suspect]
     Active Substance: CYTARABINE
     Indication: Hodgkin^s disease recurrent
     Dosage: 4 CYCLES, HIGH-DOSE (2 PER SQUARE METRE, Q12H)
     Route: 065
  8. CYTARABINE [Suspect]
     Active Substance: CYTARABINE
     Indication: Hodgkin^s disease nodular sclerosis stage IV
  9. CYTARABINE [Suspect]
     Active Substance: CYTARABINE
     Indication: Hodgkin^s disease
  10. DEXAMETHASONE SODIUM PHOSPHATE [Suspect]
     Active Substance: DEXAMETHASONE PHOSPHATE\DEXAMETHASONE SODIUM PHOSPHATE
     Indication: Hodgkin^s disease nodular sclerosis stage IV
     Dosage: 4 CYCLES
     Route: 048
  11. DEXAMETHASONE SODIUM PHOSPHATE [Suspect]
     Active Substance: DEXAMETHASONE PHOSPHATE\DEXAMETHASONE SODIUM PHOSPHATE
     Indication: Hodgkin^s disease recurrent
  12. DEXAMETHASONE SODIUM PHOSPHATE [Suspect]
     Active Substance: DEXAMETHASONE PHOSPHATE\DEXAMETHASONE SODIUM PHOSPHATE
     Indication: Hodgkin^s disease
  13. BENDAMUSTINE HYDROCHLORIDE [Suspect]
     Active Substance: BENDAMUSTINE HYDROCHLORIDE
     Indication: Hodgkin^s disease recurrent
     Dosage: 2 CYCLES, (90 MG/M2 , DAYS 1 AND 2)
     Route: 065
  14. BENDAMUSTINE HYDROCHLORIDE [Suspect]
     Active Substance: BENDAMUSTINE HYDROCHLORIDE
     Indication: Hodgkin^s disease nodular sclerosis stage IV
  15. BENDAMUSTINE HYDROCHLORIDE [Suspect]
     Active Substance: BENDAMUSTINE HYDROCHLORIDE
     Indication: Hodgkin^s disease
  16. VINCRISTINE [Concomitant]
     Active Substance: VINCRISTINE
     Indication: Hodgkin^s disease
     Dosage: UNK
     Route: 065
  17. ADRIAMYCIN [Concomitant]
     Active Substance: DOXORUBICIN HYDROCHLORIDE
     Indication: Hodgkin^s disease
     Dosage: UNK
  18. DACARBAZINE [Concomitant]
     Active Substance: DACARBAZINE
     Indication: Hodgkin^s disease
     Dosage: UNK
     Route: 065
  19. PREDNISONE [Concomitant]
     Active Substance: PREDNISONE
     Indication: Hodgkin^s disease
     Dosage: UNK
     Route: 065
  20. ETOPOSIDE [Concomitant]
     Active Substance: ETOPOSIDE
     Indication: Hodgkin^s disease
     Dosage: UNK
     Route: 065
  21. CYCLOPHOSPHAMIDE [Concomitant]
     Active Substance: CYCLOPHOSPHAMIDE
     Indication: Hodgkin^s disease
     Dosage: UNK
     Route: 065

REACTIONS (6)
  - Thrombocytopenia [Recovered/Resolved]
  - Neutropenia [Recovered/Resolved]
  - Hepatotoxicity [Recovered/Resolved]
  - Alanine aminotransferase increased [Unknown]
  - Anaemia [Recovered/Resolved]
  - Off label use [Unknown]
